FAERS Safety Report 4611455-1 (Version None)
Quarter: 2005Q1

REPORT INFORMATION
  Report Type: 
  Country: None (occurrence: None)
  Receive Date: 20050317
  Receipt Date: 19900213
  Transmission Date: 20050727
  Serious: Yes (Other)
  Sender: FDA-Public Use
  Company Number: S8930861

PATIENT
  Age: 76 Year
  Sex: Male
  Weight: 75 kg

DRUGS (3)
  1. DICLOFENAC [Suspect]
     Dates: start: 19901001, end: 19901001
  2. ALLVORAN [Suspect]
     Dosage: 1 DF, ONCE/SINGLE
     Dates: start: 19891026, end: 19891026
  3. VOLTAREN [Suspect]
     Indication: MUSCULOSKELETAL DISORDER
     Dosage: UNK, UNK
     Route: 065
     Dates: end: 19880101

REACTIONS (7)
  - ANAPHYLACTIC REACTION [None]
  - CONDITION AGGRAVATED [None]
  - GASTROINTESTINAL HAEMORRHAGE [None]
  - HAEMORRHAGE [None]
  - PROCTOCOLITIS [None]
  - SHOCK [None]
  - VASCULITIS [None]
